FAERS Safety Report 19278834 (Version 1)
Quarter: 2021Q2

REPORT INFORMATION
  Report Type: Spontaneous
  Country: US (occurrence: US)
  Receive Date: 20210520
  Receipt Date: 20210520
  Transmission Date: 20210717
  Serious: Yes (Hospitalization)
  Sender: FDA-Public Use
  Company Number: None

PATIENT
  Age: 74 Year
  Sex: Female

DRUGS (9)
  1. ASPIRIN. [Concomitant]
     Active Substance: ASPIRIN
  2. MORPHINE SULFATE. [Concomitant]
     Active Substance: MORPHINE SULFATE
  3. ELIQUIS [Concomitant]
     Active Substance: APIXABAN
  4. ONE TOUCH DELICA LANCETS 33G [Concomitant]
  5. VITAMIN D3 [Concomitant]
     Active Substance: CHOLECALCIFEROL
  6. METOPROLOL SUCCINATE ER [Concomitant]
     Active Substance: METOPROLOL SUCCINATE
  7. CAPECITABINE 500 MG TABLET [Suspect]
     Active Substance: CAPECITABINE
     Indication: PANCREATIC CARCINOMA
     Route: 048
     Dates: start: 20210326
  8. FAMOTIDINE. [Concomitant]
     Active Substance: FAMOTIDINE
  9. TRESIBA [Concomitant]
     Active Substance: INSULIN DEGLUDEC

REACTIONS (1)
  - Hospitalisation [None]

NARRATIVE: CASE EVENT DATE: 20210510
